FAERS Safety Report 4581006-9 (Version None)
Quarter: 2005Q1

REPORT INFORMATION
  Report Type: 
  Country: None (occurrence: None)
  Receive Date: 20050214
  Receipt Date: 20040716
  Transmission Date: 20050727
  Serious: No
  Sender: FDA-Public Use
  Company Number: US-GLAXOSMITHKLINE-A0518640A

PATIENT
  Age: 32 Year
  Sex: Female

DRUGS (2)
  1. LAMICTAL [Suspect]
     Indication: BIPOLAR DISORDER
     Dosage: 150MG PER DAY
     Route: 048
     Dates: start: 20040310, end: 20040712
  2. LEXAPRO [Concomitant]
     Dosage: 10MG PER DAY
     Route: 048
     Dates: start: 20030804

REACTIONS (2)
  - RASH [None]
  - URTICARIA [None]
